FAERS Safety Report 4333492-7 (Version None)
Quarter: 2004Q1

REPORT INFORMATION
  Report Type: 
  Country: None (occurrence: None)
  Receive Date: 20040329
  Receipt Date: 20040212
  Transmission Date: 20041129
  Serious: No
  Sender: FDA-Public Use
  Company Number: 04P-163-0250376-00

PATIENT
  Age: 51 Year
  Sex: Female
  Weight: 54.4316 kg

DRUGS (12)
  1. HUMIRA [Suspect]
     Indication: RHEUMATOID ARTHRITIS
     Dosage: SEE IMAGE
     Route: 058
     Dates: start: 20030601, end: 20030101
  2. HUMIRA [Suspect]
     Indication: RHEUMATOID ARTHRITIS
     Dosage: SEE IMAGE
     Route: 058
     Dates: start: 20030101
  3. LANSOPRAZOLE [Concomitant]
  4. LEVOTHYROXINE SODIUM [Concomitant]
  5. LIOTHYRONINE SODIUM [Concomitant]
  6. DILTIAZEM HYDROCHLORIDE [Concomitant]
  7. DILTIAZEM HYDROCHLORIDE [Concomitant]
  8. NABUMETOME [Concomitant]
  9. HYDROXYCHLOROQUINE PHOSPHATE [Concomitant]
  10. FLUCONAZOLE [Concomitant]
  11. CHLORAL HYDRATE [Concomitant]
  12. ESTRACE [Concomitant]

REACTIONS (2)
  - ARTHRITIS [None]
  - PERIARTHRITIS [None]
